FAERS Safety Report 23614209 (Version 1)
Quarter: 2024Q1

REPORT INFORMATION
  Report Type: Spontaneous
  Country: US (occurrence: US)
  Receive Date: 20240310
  Receipt Date: 20240310
  Transmission Date: 20240409
  Serious: Yes (Hospitalization)
  Sender: FDA-Public Use
  Company Number: US-BRISTOL-MYERS SQUIBB COMPANY-2024-037362

PATIENT
  Age: 87 Year
  Sex: Female

DRUGS (1)
  1. POMALYST [Suspect]
     Active Substance: POMALIDOMIDE
     Indication: Deficiency anaemia
     Dosage: TAKE 1 CAPSULE BY MOUTH EVERY OTHER DAY FOR 21 DAYS ON, 7 DAYS OFF
     Route: 048

REACTIONS (2)
  - Full blood count abnormal [Not Recovered/Not Resolved]
  - Off label use [Unknown]
